FAERS Safety Report 7506569-2 (Version None)
Quarter: 2011Q2

REPORT INFORMATION
  Report Type: 
  Country: None (occurrence: None)
  Receive Date: 20110526
  Receipt Date: 20110514
  Transmission Date: 20111010
  Serious: Yes (Hospitalization)
  Sender: FDA-Public Use
  Company Number: US-VIROPHARMA INCORPORATED-20110514CINRY2009

PATIENT
  Sex: Male

DRUGS (2)
  1. DANAZOL [Suspect]
     Indication: HEREDITARY ANGIOEDEMA
     Dosage: ^HIGH DOSE^
     Dates: start: 20110428, end: 20110509
  2. CINRYZE [Suspect]
     Indication: HEREDITARY ANGIOEDEMA
     Dosage: UNKNOWN
     Dates: start: 20110428

REACTIONS (9)
  - DRUG HYPERSENSITIVITY [None]
  - OFF LABEL USE [None]
  - CYANOSIS [None]
  - RASH [None]
  - HEADACHE [None]
  - RESPIRATORY TRACT INFECTION [None]
  - PYREXIA [None]
  - OXYGEN SATURATION DECREASED [None]
  - HEREDITARY ANGIOEDEMA [None]
